FAERS Safety Report 7104921-0 (Version None)
Quarter: 2010Q4

REPORT INFORMATION
  Report Type: 
  Country: None (occurrence: None)
  Receive Date: 20101110
  Receipt Date: 20101026
  Transmission Date: 20110411
  Serious: Yes (Death)
  Sender: FDA-Public Use
  Company Number: 2010S1000229

PATIENT
  Age: 63 Year
  Sex: Female

DRUGS (2)
  1. INOMAX [Suspect]
     Indication: ACUTE RESPIRATORY DISTRESS SYNDROME
     Dosage: 20 PPM; CONT; INH
     Route: 055
     Dates: start: 20101026, end: 20101026
  2. INOMAX [Suspect]
     Indication: ACUTE RESPIRATORY DISTRESS SYNDROME

REACTIONS (2)
  - DEVICE MALFUNCTION [None]
  - MULTI-ORGAN FAILURE [None]
